FAERS Safety Report 5046706-5 (Version None)
Quarter: 2006Q3

REPORT INFORMATION
  Report Type: 
  Country: None (occurrence: None)
  Receive Date: 20060705
  Receipt Date: 20060705
  Transmission Date: 20061208
  Serious: Yes (Life-Threatening, Hospitalization, Disabling, Other)
  Sender: FDA-Public Use
  Company Number: None

PATIENT
  Age: 78 Year
  Sex: Male
  Weight: 126 kg

DRUGS (3)
  1. TRASYLOL [Suspect]
     Indication: HAEMORRHAGE
     Dosage: 200 ML BOLUS PLUS 50 ML/HR X 200ML TOTAL 400 ML + TEST DOSE
     Route: 040
     Dates: start: 20060516
  2. TRASYLOL [Suspect]
     Indication: PROPHYLAXIS
     Dosage: 200 ML BOLUS PLUS 50 ML/HR X 200ML TOTAL 400 ML + TEST DOSE
     Route: 040
     Dates: start: 20060516
  3. SEE ATTACHED SHEET FOR OTHER MEDS GIVEN 5/16-5/21 BETWEEN SURGERY + ST [Concomitant]

REACTIONS (3)
  - CEREBRAL ISCHAEMIA [None]
  - CEREBROVASCULAR ACCIDENT [None]
  - POST PROCEDURAL COMPLICATION [None]
